FAERS Safety Report 9711828 (Version 2)
Quarter: 2013Q4

REPORT INFORMATION
  Report Type: Spontaneous
  Country: NL (occurrence: NL)
  Receive Date: 20131126
  Receipt Date: 20131209
  Transmission Date: 20140711
  Serious: Yes (Life-Threatening, Hospitalization)
  Sender: FDA-Public Use
  Company Number: NL-B.I. PHARMACEUTICALS,INC./RIDGEFIELD-2013-BI-38493NL

PATIENT
  Age: 46 Year
  Sex: Male
  Weight: 77 kg

DRUGS (5)
  1. PRADAXA [Suspect]
     Indication: ATRIAL FIBRILLATION
     Dosage: 300 MG
     Route: 048
     Dates: start: 20131017, end: 20131116
  2. AMIODARONE [Concomitant]
     Indication: ATRIAL FIBRILLATION
     Route: 048
  3. ATORVASTATIN [Concomitant]
     Route: 048
  4. ASCAL [Concomitant]
     Indication: ATRIAL FIBRILLATION
     Route: 048
  5. VERAPAMIL [Concomitant]
     Indication: ATRIAL FIBRILLATION
     Route: 048

REACTIONS (4)
  - Cerebrovascular accident [Recovered/Resolved with Sequelae]
  - Paraplegia [Recovered/Resolved with Sequelae]
  - Aphasia [Recovered/Resolved with Sequelae]
  - Rebound effect [Recovered/Resolved with Sequelae]
